FAERS Safety Report 7474938-5 (Version None)
Quarter: 2011Q2

REPORT INFORMATION
  Report Type: 
  Country: None (occurrence: None)
  Receive Date: 20110512
  Receipt Date: 20110323
  Transmission Date: 20111010
  Serious: Yes (Death, Hospitalization, Other)
  Sender: FDA-Public Use
  Company Number: US-BAYER-201012137NA

PATIENT
  Age: 76 Year
  Sex: Male
  Weight: 77 kg

DRUGS (24)
  1. GENTAMICIN [Concomitant]
     Dosage: UNK
     Route: 042
     Dates: start: 20040520
  2. PHENYLEPHRINE HCL [Concomitant]
     Dosage: UNK
     Route: 042
     Dates: start: 20040520
  3. PAPAVERINE [Concomitant]
     Dosage: UNK
     Route: 042
     Dates: start: 20040520
  4. CEFAZOLIN [Concomitant]
     Dosage: UNK
     Route: 042
     Dates: start: 20040520
  5. FRESH FROZEN PLASMA [Concomitant]
     Dosage: UNK
     Route: 042
     Dates: start: 20040520
  6. DOBUTAMINE HYDROCHLORIDE [Concomitant]
  7. HEPARIN [Concomitant]
     Dosage: UNK
     Dates: start: 20040519
  8. HEPARIN [Concomitant]
     Dosage: 22,000 UNITS
     Route: 042
     Dates: start: 20040520
  9. PLASMA-LYTE 56 AND DEXTROSE 5% IN PLASTIC CONTAINER [Concomitant]
     Dosage: UNK
     Route: 042
     Dates: start: 20040520
  10. VANCOMYCIN [Concomitant]
     Dosage: 1 GRAM
     Route: 042
     Dates: start: 20040520
  11. METHYLPREDNISOLONE [Concomitant]
     Dosage: UNK
     Route: 042
     Dates: start: 20040520
  12. PLEGISOL [Concomitant]
     Dosage: UNK
     Route: 042
     Dates: start: 20040520
  13. OMNIPAQUE 140 [Concomitant]
     Indication: CATHETERISATION CARDIAC
     Dosage: 150 ML, UNK
     Dates: start: 20040519
  14. TRASYLOL [Suspect]
     Indication: CORONARY ARTERY BYPASS
     Dosage: 1 ML TEST DOSE
     Route: 042
     Dates: start: 20040520, end: 20040520
  15. TRASYLOL [Suspect]
     Dosage: 300 ML LOADING DOSE
     Dates: start: 20040520, end: 20040520
  16. TRASYLOL [Suspect]
     Dosage: TRASYLOL PUMP PRIME 200ML PER PERFUSIONIST
     Dates: start: 20040520
  17. RED BLOOD CELLS [Concomitant]
     Dosage: UNK
     Route: 042
     Dates: start: 20040520
  18. NITROGLYCERIN [Concomitant]
     Dosage: UNK
     Route: 042
     Dates: start: 20040520
  19. ALBUMIN (HUMAN) [Concomitant]
     Dosage: UNK
     Route: 042
     Dates: start: 20040520
  20. EPINEPHRINE [Concomitant]
  21. SODIUM NITROPRUSSIDE [Concomitant]
     Dosage: UNK
     Route: 042
     Dates: start: 20040520
  22. VERSED [Concomitant]
     Dosage: UNK
     Route: 042
     Dates: start: 20040520
  23. PROTAMINE SULFATE [Concomitant]
     Dosage: 20 CC
     Route: 042
     Dates: end: 20040520
  24. MORPHINE [Concomitant]
     Dosage: UNK
     Route: 042
     Dates: start: 20040520

REACTIONS (14)
  - MULTI-ORGAN FAILURE [None]
  - INJURY [None]
  - EMOTIONAL DISTRESS [None]
  - PAIN [None]
  - CEREBROVASCULAR ACCIDENT [None]
  - DEATH [None]
  - FEAR [None]
  - RENAL FAILURE [None]
  - UNEVALUABLE EVENT [None]
  - MYOCARDIAL INFARCTION [None]
  - RENAL IMPAIRMENT [None]
  - RENAL INJURY [None]
  - STRESS [None]
  - ANXIETY [None]
